FAERS Safety Report 8350801-2 (Version None)
Quarter: 2012Q2

REPORT INFORMATION
  Report Type: 
  Country: None (occurrence: None)
  Receive Date: 20120510
  Receipt Date: 20120502
  Transmission Date: 20120825
  Serious: Yes (Hospitalization)
  Sender: FDA-Public Use
  Company Number: US-MUTUAL PHARMACEUTICAL COMPANY, INC.-CLCY20120075

PATIENT
  Sex: Female

DRUGS (1)
  1. COLCRYS [Suspect]
     Route: 048

REACTIONS (2)
  - NO ADVERSE EVENT [None]
  - ACCIDENTAL DRUG INTAKE BY CHILD [None]
